FAERS Safety Report 5402895-1 (Version None)
Quarter: 2007Q3

REPORT INFORMATION
  Report Type: 
  Country: None (occurrence: None)
  Receive Date: 20070801
  Receipt Date: 20070720
  Transmission Date: 20080115
  Serious: Yes (Other)
  Sender: FDA-Public Use
  Company Number: US-ROCHE-477319

PATIENT
  Age: 29 Year
  Sex: Female
  Weight: 66.2 kg

DRUGS (1)
  1. ACCUTANE [Suspect]
     Indication: ACNE
     Route: 048
     Dates: start: 19990301, end: 19990601

REACTIONS (7)
  - ANXIETY [None]
  - COLITIS [None]
  - COLITIS ULCERATIVE [None]
  - HAEMATOCHEZIA [None]
  - INFLAMMATORY BOWEL DISEASE [None]
  - IRRITABLE BOWEL SYNDROME [None]
  - PROCTITIS ULCERATIVE [None]
